FAERS Safety Report 5733648-2 (Version None)
Quarter: 2008Q2

REPORT INFORMATION
  Report Type: 
  Country: None (occurrence: None)
  Receive Date: 20080509
  Receipt Date: 20080205
  Transmission Date: 20081010
  Serious: No
  Sender: FDA-Public Use
  Company Number: A0707491A

PATIENT
  Age: 11 Year
  Sex: Female

DRUGS (1)
  1. ALTABAX [Suspect]
     Indication: IMPETIGO
     Route: 061
     Dates: start: 20080101, end: 20080101

REACTIONS (1)
  - APPLICATION SITE BURN [None]
